FAERS Safety Report 4865830-0 (Version None)
Quarter: 2005Q4

REPORT INFORMATION
  Report Type: 
  Country: None (occurrence: None)
  Receive Date: 20051220
  Receipt Date: 20051208
  Transmission Date: 20060501
  Serious: Yes (Hospitalization)
  Sender: FDA-Public Use
  Company Number: 2005140172

PATIENT
  Age: 41 Year
  Sex: Female

DRUGS (3)
  1. PREGABALIN (PREGABALIN) [Suspect]
     Indication: PARTIAL SEIZURES
     Dosage: 600 MG, ORAL
     Route: 048
     Dates: start: 20050725
  2. PHENYTOIN [Concomitant]
  3. CLONAZEPAM [Concomitant]

REACTIONS (6)
  - BREAST CYST [None]
  - DYSMENORRHOEA [None]
  - ENDOMETRIOSIS [None]
  - HAEMORRHAGIC OVARIAN CYST [None]
  - UTERINE DISORDER [None]
  - WEIGHT INCREASED [None]
